FAERS Safety Report 13089182 (Version 1)
Quarter: 2017Q1

REPORT INFORMATION
  Report Type: Spontaneous
  Country: US (occurrence: US)
  Receive Date: 20170105
  Receipt Date: 20170105
  Transmission Date: 20170428
  Serious: No
  Sender: FDA-Public Use
  Company Number: US-009507513-1612USA009916

PATIENT
  Age: 85 Year
  Sex: Male

DRUGS (8)
  1. LISINOPRIL. [Concomitant]
     Active Substance: LISINOPRIL
  2. ATROPINE (+) DIPHENHYDRAMINE HYDROCHLORIDE [Concomitant]
  3. POTASSIUM CHLORIDE. [Concomitant]
     Active Substance: POTASSIUM CHLORIDE
  4. ASPIRIN. [Concomitant]
     Active Substance: ASPIRIN
  5. VYTORIN [Concomitant]
     Active Substance: EZETIMIBE\SIMVASTATIN
     Dosage: UNK
  6. INTRON A [Suspect]
     Active Substance: INTERFERON ALFA-2B
     Indication: BLADDER CANCER
     Dosage: 18 MILLION IU, 3ML MDV
     Dates: start: 201607
  7. SULFAMETHOXAZOLE [Concomitant]
     Active Substance: SULFAMETHOXAZOLE
  8. LASIX [Concomitant]
     Active Substance: FUROSEMIDE

REACTIONS (4)
  - Blood urine present [Not Recovered/Not Resolved]
  - Urinary tract infection [Not Recovered/Not Resolved]
  - Micturition urgency [Not Recovered/Not Resolved]
  - Product use issue [Unknown]

NARRATIVE: CASE EVENT DATE: 201607
